FAERS Safety Report 4971441-9 (Version None)
Quarter: 2006Q2

REPORT INFORMATION
  Report Type: 
  Country: None (occurrence: None)
  Receive Date: 20060406
  Receipt Date: 20060324
  Transmission Date: 20061013
  Serious: Yes (Other)
  Sender: FDA-Public Use
  Company Number: 2006JP000479

PATIENT
  Age: 61 Year
  Sex: Female

DRUGS (14)
  1. FUNGUARD (MICAFUNGIN) INJECTION [Suspect]
     Indication: PULMONARY MYCOSIS
     Dosage: 300 MG, UID/QD, IV DRIP
     Route: 041
     Dates: start: 20060131, end: 20060228
  2. CEFTAZIDIME [Suspect]
     Dosage: 2 G, UID/QD, IV DRIP
     Route: 041
     Dates: start: 20060215, end: 20060228
  3. ISOTONIC SOLUTIONS INJECTION [Concomitant]
  4. NITRAZEPAM [Concomitant]
  5. LASIX [Concomitant]
  6. LANSOPRAZOLE [Concomitant]
  7. MAGNESIUM OXIDE (MAGNESIUM OXIDE) [Concomitant]
  8. MEDROL ACETATE [Concomitant]
  9. ADEROXAL (PYRIDOXAL PHOSPHATE) [Concomitant]
  10. ASPARA K (ASPARTATE POTASSIUM) POWDER [Concomitant]
  11. ISONIAZID [Concomitant]
  12. ITRACONAZOLE [Concomitant]
  13. PYDOXAL (PYRIDOXAL PHOSPHATE) [Concomitant]
  14. PREDNISOLONE [Concomitant]

REACTIONS (6)
  - CULTURE POSITIVE [None]
  - ERYTHEMA [None]
  - INFUSION SITE EXTRAVASATION [None]
  - PSEUDOMONAS INFECTION [None]
  - SKIN NECROSIS [None]
  - SKIN ULCER [None]
